FAERS Safety Report 23865644 (Version 3)
Quarter: 2025Q1

REPORT INFORMATION
  Report Type: Spontaneous
  Country: CA (occurrence: CA)
  Receive Date: 20240517
  Receipt Date: 20250325
  Transmission Date: 20250409
  Serious: Yes (Other)
  Sender: ORGANON
  Company Number: CA-ORGANON-O2405CAN001176

PATIENT
  Age: 41 Year
  Sex: Female

DRUGS (234)
  1. MAXALT [Suspect]
     Active Substance: RIZATRIPTAN BENZOATE
     Indication: Migraine
     Route: 065
  2. MAXALT [Suspect]
     Active Substance: RIZATRIPTAN BENZOATE
     Route: 065
  3. MAXALT [Suspect]
     Active Substance: RIZATRIPTAN BENZOATE
     Route: 065
  4. MOMETASONE FUROATE [Suspect]
     Active Substance: MOMETASONE FUROATE
     Indication: Product used for unknown indication
     Route: 065
  5. MOMETASONE FUROATE [Suspect]
     Active Substance: MOMETASONE FUROATE
     Route: 065
  6. MOMETASONE FUROATE [Suspect]
     Active Substance: MOMETASONE FUROATE
     Route: 065
  7. MOMETASONE FUROATE [Suspect]
     Active Substance: MOMETASONE FUROATE
     Route: 065
  8. ACETAMINOPHEN [Suspect]
     Active Substance: ACETAMINOPHEN
     Indication: Product used for unknown indication
     Route: 065
  9. AMOXICILLIN [Suspect]
     Active Substance: AMOXICILLIN
     Indication: Product used for unknown indication
     Route: 065
  10. AMOXICILLIN [Suspect]
     Active Substance: AMOXICILLIN
     Route: 065
  11. AMOXICILLIN [Suspect]
     Active Substance: AMOXICILLIN
     Route: 065
  12. CIPROFLOXACIN [Suspect]
     Active Substance: CIPROFLOXACIN
     Indication: Migraine
     Route: 065
  13. CIPROFLOXACIN [Suspect]
     Active Substance: CIPROFLOXACIN
     Route: 065
  14. CIPROFLOXACIN [Suspect]
     Active Substance: CIPROFLOXACIN
     Dosage: 1 DOSAGE FORM, QD
     Route: 065
  15. CIPROFLOXACIN [Suspect]
     Active Substance: CIPROFLOXACIN
     Route: 065
  16. CLARITHROMYCIN [Suspect]
     Active Substance: CLARITHROMYCIN
     Indication: Product used for unknown indication
     Route: 065
  17. CLARITHROMYCIN [Suspect]
     Active Substance: CLARITHROMYCIN
     Route: 065
  18. CODEINE [Suspect]
     Active Substance: CODEINE
     Indication: Migraine
     Route: 065
  19. CODEINE [Suspect]
     Active Substance: CODEINE
     Route: 065
  20. DEXAMETHASONE [Suspect]
     Active Substance: DEXAMETHASONE
     Indication: Migraine
     Route: 065
  21. DEXAMETHASONE [Suspect]
     Active Substance: DEXAMETHASONE
     Route: 065
  22. DULOXETINE HYDROCHLORIDE [Suspect]
     Active Substance: DULOXETINE HYDROCHLORIDE
     Indication: Migraine
     Route: 065
  23. DULOXETINE HYDROCHLORIDE [Suspect]
     Active Substance: DULOXETINE HYDROCHLORIDE
     Route: 065
  24. ESCITALOPRAM [Suspect]
     Active Substance: ESCITALOPRAM OXALATE
     Indication: Migraine
     Route: 065
  25. ESOMEPRAZOLE [Suspect]
     Active Substance: ESOMEPRAZOLE
     Indication: Migraine
     Route: 065
  26. ESOMEPRAZOLE [Suspect]
     Active Substance: ESOMEPRAZOLE
     Route: 065
  27. FLUCONAZOLE [Suspect]
     Active Substance: FLUCONAZOLE
     Indication: Migraine
     Route: 065
  28. HYDROMORPHONE [Suspect]
     Active Substance: HYDROMORPHONE
     Indication: Migraine
     Route: 065
  29. HYDROMORPHONE [Suspect]
     Active Substance: HYDROMORPHONE
     Route: 065
  30. HYDROMORPHONE [Suspect]
     Active Substance: HYDROMORPHONE
     Route: 065
  31. HYDROMORPHONE [Suspect]
     Active Substance: HYDROMORPHONE
     Route: 065
  32. HYDROMORPHONE [Suspect]
     Active Substance: HYDROMORPHONE
     Route: 065
  33. HYDROMORPHONE [Suspect]
     Active Substance: HYDROMORPHONE
     Route: 065
  34. HYDROMORPHONE [Suspect]
     Active Substance: HYDROMORPHONE
     Route: 065
  35. HYDROMORPHONE [Suspect]
     Active Substance: HYDROMORPHONE
     Route: 065
  36. HYDROMORPHONE [Suspect]
     Active Substance: HYDROMORPHONE
     Route: 065
  37. HYDROMORPHONE [Suspect]
     Active Substance: HYDROMORPHONE
     Route: 065
  38. HYDROMORPHONE [Suspect]
     Active Substance: HYDROMORPHONE
     Route: 065
  39. HYDROMORPHONE [Suspect]
     Active Substance: HYDROMORPHONE
     Route: 065
  40. HYDROMORPHONE [Suspect]
     Active Substance: HYDROMORPHONE
     Route: 065
  41. SCOPOLAMINE [Suspect]
     Active Substance: SCOPOLAMINE
     Indication: Migraine
     Route: 065
  42. INDOMETHACIN [Suspect]
     Active Substance: INDOMETHACIN
     Indication: Migraine
     Route: 054
  43. INDOMETHACIN [Suspect]
     Active Substance: INDOMETHACIN
     Route: 054
  44. INDOMETHACIN [Suspect]
     Active Substance: INDOMETHACIN
     Route: 054
  45. INDOMETHACIN [Suspect]
     Active Substance: INDOMETHACIN
     Route: 054
  46. INDOMETHACIN [Suspect]
     Active Substance: INDOMETHACIN
     Route: 054
  47. INDOMETHACIN [Suspect]
     Active Substance: INDOMETHACIN
     Route: 065
  48. INDOMETHACIN [Suspect]
     Active Substance: INDOMETHACIN
     Route: 054
  49. INDOMETHACIN [Suspect]
     Active Substance: INDOMETHACIN
     Route: 054
  50. INDOMETHACIN [Suspect]
     Active Substance: INDOMETHACIN
     Route: 054
  51. INDOMETHACIN [Suspect]
     Active Substance: INDOMETHACIN
     Route: 054
  52. INDOMETHACIN [Suspect]
     Active Substance: INDOMETHACIN
     Route: 054
  53. INDOMETHACIN [Suspect]
     Active Substance: INDOMETHACIN
     Route: 054
  54. INDOMETHACIN [Suspect]
     Active Substance: INDOMETHACIN
     Route: 054
  55. INDOMETHACIN [Suspect]
     Active Substance: INDOMETHACIN
     Route: 054
  56. INDOMETHACIN [Suspect]
     Active Substance: INDOMETHACIN
     Route: 054
  57. INDOMETHACIN [Suspect]
     Active Substance: INDOMETHACIN
     Route: 054
  58. INDOMETHACIN [Suspect]
     Active Substance: INDOMETHACIN
     Route: 054
  59. INDOMETHACIN [Suspect]
     Active Substance: INDOMETHACIN
     Route: 054
  60. INDOMETHACIN [Suspect]
     Active Substance: INDOMETHACIN
     Route: 054
  61. INDOMETHACIN [Suspect]
     Active Substance: INDOMETHACIN
     Route: 054
  62. INDOMETHACIN [Suspect]
     Active Substance: INDOMETHACIN
     Route: 054
  63. INDOMETHACIN [Suspect]
     Active Substance: INDOMETHACIN
     Route: 054
  64. INDOMETHACIN [Suspect]
     Active Substance: INDOMETHACIN
     Route: 054
  65. INDOMETHACIN [Suspect]
     Active Substance: INDOMETHACIN
     Route: 054
  66. INDOMETHACIN [Suspect]
     Active Substance: INDOMETHACIN
     Route: 054
  67. INDOMETHACIN [Suspect]
     Active Substance: INDOMETHACIN
     Route: 054
  68. INDOMETHACIN [Suspect]
     Active Substance: INDOMETHACIN
     Route: 054
  69. LANSOPRAZOLE [Suspect]
     Active Substance: LANSOPRAZOLE
     Indication: Migraine
     Route: 065
  70. LISINOPRIL [Suspect]
     Active Substance: LISINOPRIL
     Indication: Product used for unknown indication
     Route: 065
  71. LISINOPRIL [Suspect]
     Active Substance: LISINOPRIL
     Route: 065
  72. LISINOPRIL [Suspect]
     Active Substance: LISINOPRIL
     Dosage: 1 DOSAGE FORM, QD
     Route: 048
  73. LISINOPRIL [Suspect]
     Active Substance: LISINOPRIL
     Dosage: 1 DOSAGE FORM, QD
     Route: 048
  74. METOCLOPRAMIDE [Suspect]
     Active Substance: METOCLOPRAMIDE
     Indication: Migraine
     Route: 065
  75. METOCLOPRAMIDE [Suspect]
     Active Substance: METOCLOPRAMIDE
     Route: 065
  76. AZITHROMYCIN ANHYDROUS [Suspect]
     Active Substance: AZITHROMYCIN ANHYDROUS
     Indication: Migraine
     Route: 065
  77. AZITHROMYCIN ANHYDROUS [Suspect]
     Active Substance: AZITHROMYCIN ANHYDROUS
     Route: 065
  78. PREDNISONE [Suspect]
     Active Substance: PREDNISONE
     Indication: Product used for unknown indication
     Dosage: 2 DOSAGE FORM, QD
     Route: 065
  79. PREDNISONE [Suspect]
     Active Substance: PREDNISONE
     Route: 065
  80. PROPRANOLOL [Suspect]
     Active Substance: PROPRANOLOL HYDROCHLORIDE
     Indication: Migraine
     Route: 065
  81. PROPRANOLOL [Suspect]
     Active Substance: PROPRANOLOL HYDROCHLORIDE
     Route: 065
  82. PROPRANOLOL [Suspect]
     Active Substance: PROPRANOLOL HYDROCHLORIDE
     Route: 065
  83. RABEPRAZOLE [Suspect]
     Active Substance: RABEPRAZOLE
     Indication: Migraine
     Route: 065
  84. RABEPRAZOLE [Suspect]
     Active Substance: RABEPRAZOLE
     Route: 065
  85. RABEPRAZOLE [Suspect]
     Active Substance: RABEPRAZOLE
     Route: 065
  86. RABEPRAZOLE [Suspect]
     Active Substance: RABEPRAZOLE
     Route: 065
  87. RABEPRAZOLE [Suspect]
     Active Substance: RABEPRAZOLE
     Route: 065
  88. RABEPRAZOLE [Suspect]
     Active Substance: RABEPRAZOLE
     Route: 065
  89. RABEPRAZOLE [Suspect]
     Active Substance: RABEPRAZOLE
     Route: 065
  90. RABEPRAZOLE [Suspect]
     Active Substance: RABEPRAZOLE
     Route: 065
  91. RABEPRAZOLE [Suspect]
     Active Substance: RABEPRAZOLE
     Route: 065
  92. RABEPRAZOLE [Suspect]
     Active Substance: RABEPRAZOLE
     Route: 065
  93. RABEPRAZOLE [Suspect]
     Active Substance: RABEPRAZOLE
     Route: 065
  94. RABEPRAZOLE [Suspect]
     Active Substance: RABEPRAZOLE
     Route: 065
  95. RABEPRAZOLE [Suspect]
     Active Substance: RABEPRAZOLE
     Route: 065
  96. RABEPRAZOLE [Suspect]
     Active Substance: RABEPRAZOLE
     Route: 065
  97. RABEPRAZOLE [Suspect]
     Active Substance: RABEPRAZOLE
     Route: 065
  98. RABEPRAZOLE [Suspect]
     Active Substance: RABEPRAZOLE
     Route: 065
  99. RABEPRAZOLE [Suspect]
     Active Substance: RABEPRAZOLE
     Route: 065
  100. RABEPRAZOLE [Suspect]
     Active Substance: RABEPRAZOLE
     Route: 065
  101. RABEPRAZOLE [Suspect]
     Active Substance: RABEPRAZOLE
     Route: 065
  102. RABEPRAZOLE [Suspect]
     Active Substance: RABEPRAZOLE
     Route: 065
  103. ALBUTEROL [Suspect]
     Active Substance: ALBUTEROL
     Indication: Product used for unknown indication
     Route: 065
  104. ALBUTEROL [Suspect]
     Active Substance: ALBUTEROL
     Route: 065
  105. SERTRALINE [Suspect]
     Active Substance: SERTRALINE HYDROCHLORIDE
     Indication: Migraine
     Route: 065
  106. SERTRALINE [Suspect]
     Active Substance: SERTRALINE HYDROCHLORIDE
     Route: 065
  107. SUMATRIPTAN [Suspect]
     Active Substance: SUMATRIPTAN
     Indication: Migraine
     Route: 065
  108. SUMATRIPTAN [Suspect]
     Active Substance: SUMATRIPTAN
     Route: 065
  109. SUMATRIPTAN [Suspect]
     Active Substance: SUMATRIPTAN
     Route: 065
  110. TOPIRAMATE [Suspect]
     Active Substance: TOPIRAMATE
     Indication: Migraine
     Route: 065
  111. TOPIRAMATE [Suspect]
     Active Substance: TOPIRAMATE
     Route: 065
  112. TRAMADOL HYDROCHLORIDE [Suspect]
     Active Substance: TRAMADOL HYDROCHLORIDE
     Indication: Product used for unknown indication
     Route: 065
  113. TRAMADOL HYDROCHLORIDE [Suspect]
     Active Substance: TRAMADOL HYDROCHLORIDE
     Route: 065
  114. TRIMETHOPRIM [Suspect]
     Active Substance: TRIMETHOPRIM
     Indication: Product used for unknown indication
     Route: 065
  115. VENLAFAXINE HYDROCHLORIDE [Suspect]
     Active Substance: VENLAFAXINE HYDROCHLORIDE
     Indication: Product used for unknown indication
     Route: 065
  116. VENLAFAXINE HYDROCHLORIDE [Suspect]
     Active Substance: VENLAFAXINE HYDROCHLORIDE
     Route: 065
  117. ZOLMITRIPTAN [Suspect]
     Active Substance: ZOLMITRIPTAN
     Indication: Product used for unknown indication
     Route: 048
  118. ZOPICLONE [Suspect]
     Active Substance: ZOPICLONE
     Indication: Migraine
     Dosage: 1 DOSAGE FORM, QD
     Route: 065
  119. ZOPICLONE [Suspect]
     Active Substance: ZOPICLONE
     Dosage: 1 DOSAGE FORM, QD
     Route: 065
  120. ZOPICLONE [Suspect]
     Active Substance: ZOPICLONE
     Dosage: 1 DOSAGE FORM, QD
     Route: 065
  121. ZOPICLONE [Suspect]
     Active Substance: ZOPICLONE
     Dosage: 1 DOSAGE FORM, QD
     Route: 065
  122. ZOPICLONE [Suspect]
     Active Substance: ZOPICLONE
     Dosage: 1 DOSAGE FORM, QD
     Route: 065
  123. ZOPICLONE [Suspect]
     Active Substance: ZOPICLONE
     Dosage: 1 DOSAGE FORM, QD
     Route: 065
  124. ZOPICLONE [Suspect]
     Active Substance: ZOPICLONE
     Dosage: 1 DOSAGE FORM, QD
     Route: 065
  125. ZOPICLONE [Suspect]
     Active Substance: ZOPICLONE
     Dosage: 1 DOSAGE FORM, QD
     Route: 065
  126. ZOPICLONE [Suspect]
     Active Substance: ZOPICLONE
     Dosage: 1 DOSAGE FORM, QD
     Route: 065
  127. ZOPICLONE [Suspect]
     Active Substance: ZOPICLONE
     Dosage: 1 DOSAGE FORM, QD
     Route: 065
  128. ZOPICLONE [Suspect]
     Active Substance: ZOPICLONE
     Dosage: 1 DOSAGE FORM, QD
     Route: 065
  129. ZOPICLONE [Suspect]
     Active Substance: ZOPICLONE
     Dosage: 1 DOSAGE FORM, QD
     Route: 065
  130. ZOPICLONE [Suspect]
     Active Substance: ZOPICLONE
     Dosage: 1 DOSAGE FORM, QD
     Route: 065
  131. ZOPICLONE [Suspect]
     Active Substance: ZOPICLONE
     Dosage: 1 DOSAGE FORM, QD
     Route: 065
  132. ZOPICLONE [Suspect]
     Active Substance: ZOPICLONE
     Dosage: 1 DOSAGE FORM, QD
     Route: 065
  133. ZOPICLONE [Suspect]
     Active Substance: ZOPICLONE
     Dosage: 1 DOSAGE FORM, QD
     Route: 065
  134. ZOPICLONE [Suspect]
     Active Substance: ZOPICLONE
     Route: 065
  135. ZOPICLONE [Suspect]
     Active Substance: ZOPICLONE
     Route: 065
  136. ZOPICLONE [Suspect]
     Active Substance: ZOPICLONE
     Dosage: 1 DOSAGE FORM, QD
     Route: 065
  137. ACETAMINOPHEN [Suspect]
     Active Substance: ACETAMINOPHEN
     Indication: Product used for unknown indication
     Route: 065
  138. ACETAMINOPHEN [Suspect]
     Active Substance: ACETAMINOPHEN
     Route: 065
  139. AMOXICILLIN TRIHYDRATE [Suspect]
     Active Substance: AMOXICILLIN
     Indication: Product used for unknown indication
     Route: 065
  140. AMOXICILLIN TRIHYDRATE [Suspect]
     Active Substance: AMOXICILLIN
     Route: 065
  141. AMOXICILLIN TRIHYDRATE [Suspect]
     Active Substance: AMOXICILLIN
     Route: 065
  142. AZITHROMYCIN [Suspect]
     Active Substance: AZITHROMYCIN
     Indication: Product used for unknown indication
     Route: 065
  143. AZITHROMYCIN [Suspect]
     Active Substance: AZITHROMYCIN
     Indication: Migraine
     Route: 065
  144. AZITHROMYCIN [Suspect]
     Active Substance: AZITHROMYCIN
     Route: 065
  145. CLOTRIMAZOLE\FLUCONAZOLE [Suspect]
     Active Substance: CLOTRIMAZOLE\FLUCONAZOLE
     Indication: Product used for unknown indication
     Route: 065
  146. CIPRO [Suspect]
     Active Substance: CIPROFLOXACIN HYDROCHLORIDE
     Indication: Migraine
     Route: 065
  147. CIPRO [Suspect]
     Active Substance: CIPROFLOXACIN HYDROCHLORIDE
     Route: 065
  148. CIPRO [Suspect]
     Active Substance: CIPROFLOXACIN HYDROCHLORIDE
     Dosage: 1 DOSAGE FORM, 1 EVERY 1 DAYS
     Route: 065
  149. CIPRO [Suspect]
     Active Substance: CIPROFLOXACIN HYDROCHLORIDE
     Route: 065
  150. CLOTRIMAZOLE\FLUCONAZOLE [Suspect]
     Active Substance: CLOTRIMAZOLE\FLUCONAZOLE
     Indication: Product used for unknown indication
     Route: 065
  151. ESCITALOPRAM OXALATE [Suspect]
     Active Substance: ESCITALOPRAM OXALATE
     Route: 065
  152. ESOMEPRAZOLE [Suspect]
     Active Substance: ESOMEPRAZOLE
     Route: 065
  153. ESOMEPRAZOLE [Suspect]
     Active Substance: ESOMEPRAZOLE
     Route: 065
  154. LISINOPRIL [Suspect]
     Active Substance: LISINOPRIL
     Route: 065
  155. LISINOPRIL [Suspect]
     Active Substance: LISINOPRIL
     Dosage: 1 DOSAGE FORM, 1 EVERY 1 DAYS
     Route: 048
  156. LISINOPRIL [Suspect]
     Active Substance: LISINOPRIL
     Dosage: 1 DOSAGE FORM, 1 EVERY 1 DAYS
     Route: 048
  157. PROPRANOLOL HYDROCHLORIDE [Suspect]
     Active Substance: PROPRANOLOL HYDROCHLORIDE
     Route: 065
  158. PROPRANOLOL HYDROCHLORIDE [Suspect]
     Active Substance: PROPRANOLOL HYDROCHLORIDE
     Route: 065
  159. PROPRANOLOL HYDROCHLORIDE [Suspect]
     Active Substance: PROPRANOLOL HYDROCHLORIDE
     Route: 065
  160. SCOPOLAMINE HYDROBROMIDE [Suspect]
     Active Substance: SCOPOLAMINE HYDROBROMIDE
     Indication: Migraine
     Route: 065
  161. SERTRALINE HYDROCHLORIDE [Suspect]
     Active Substance: SERTRALINE HYDROCHLORIDE
     Indication: Migraine
     Route: 065
  162. SERTRALINE HYDROCHLORIDE [Suspect]
     Active Substance: SERTRALINE HYDROCHLORIDE
     Route: 065
  163. SUMATRIPTAN SUCCINATE [Suspect]
     Active Substance: SUMATRIPTAN SUCCINATE
     Indication: Migraine
     Route: 065
  164. SUMATRIPTAN SUCCINATE [Suspect]
     Active Substance: SUMATRIPTAN SUCCINATE
     Route: 065
  165. SUMATRIPTAN SUCCINATE [Suspect]
     Active Substance: SUMATRIPTAN SUCCINATE
     Route: 065
  166. SUMATRIPTAN SUCCINATE [Suspect]
     Active Substance: SUMATRIPTAN SUCCINATE
     Route: 065
  167. ZESTRIL [Suspect]
     Active Substance: LISINOPRIL
     Dosage: 1 EVERY 1 DAY
     Route: 048
  168. ZESTRIL [Suspect]
     Active Substance: LISINOPRIL
     Dosage: 1 DOSAGE FORM, QD
     Route: 048
  169. ZESTRIL [Suspect]
     Active Substance: LISINOPRIL
     Route: 065
  170. DANAZOL [Concomitant]
     Active Substance: DANAZOL
     Indication: Product used for unknown indication
     Route: 065
  171. SULFADIAZINE\TRIMETHOPRIM [Concomitant]
     Active Substance: SULFADIAZINE\TRIMETHOPRIM
     Indication: Product used for unknown indication
     Route: 065
  172. PANTOPRAZOLE [Concomitant]
     Active Substance: PANTOPRAZOLE
     Indication: Product used for unknown indication
     Route: 065
  173. OSELTAMIVIR [Concomitant]
     Active Substance: OSELTAMIVIR
     Indication: Product used for unknown indication
     Route: 065
  174. NAPROXEN [Concomitant]
     Active Substance: NAPROXEN
     Indication: Product used for unknown indication
     Route: 065
  175. MORPHINE SULFATE [Concomitant]
     Active Substance: MORPHINE SULFATE
     Indication: Product used for unknown indication
     Route: 065
  176. METRONIDAZOLE [Concomitant]
     Active Substance: METRONIDAZOLE
     Indication: Product used for unknown indication
     Route: 065
  177. METOCLOPRAMIDE [Concomitant]
     Active Substance: METOCLOPRAMIDE
     Indication: Product used for unknown indication
     Route: 065
  178. AZITHROMYCIN [Concomitant]
     Active Substance: AZITHROMYCIN
     Indication: Product used for unknown indication
     Route: 065
  179. ACETAMINOPHEN\BUTALBITAL\CAFFEINE\CODEINE PHOSPHATE [Concomitant]
     Active Substance: ACETAMINOPHEN\BUTALBITAL\CAFFEINE\CODEINE PHOSPHATE
     Indication: Product used for unknown indication
     Route: 065
  180. CEFUROXIME [Concomitant]
     Active Substance: CEFUROXIME
     Indication: Product used for unknown indication
     Route: 065
  181. CEPHALEXIN [Concomitant]
     Active Substance: CEPHALEXIN
     Indication: Product used for unknown indication
     Route: 065
  182. CYMBALTA [Concomitant]
     Active Substance: DULOXETINE HYDROCHLORIDE
     Indication: Product used for unknown indication
     Route: 065
  183. POLYETHYLENE GLYCOL 3350 [Concomitant]
     Active Substance: POLYETHYLENE GLYCOL 3350
     Indication: Product used for unknown indication
     Route: 065
  184. MACROBID [Concomitant]
     Active Substance: NITROFURANTOIN\NITROFURANTOIN MONOHYDRATE
     Indication: Product used for unknown indication
     Route: 065
  185. FROVATRIPTAN [Concomitant]
     Active Substance: FROVATRIPTAN
     Indication: Product used for unknown indication
     Route: 065
  186. FLUTICASONE [Concomitant]
     Active Substance: FLUTICASONE
     Indication: Product used for unknown indication
     Route: 065
  187. FLUOXETINE [Concomitant]
     Active Substance: FLUOXETINE HYDROCHLORIDE
     Indication: Product used for unknown indication
     Route: 065
  188. FERROUS FUMARATE [Concomitant]
     Active Substance: FERROUS FUMARATE
     Indication: Product used for unknown indication
     Route: 065
  189. PANTOPRAZOLE SODIUM ANHYDROUS [Concomitant]
     Active Substance: PANTOPRAZOLE SODIUM ANHYDROUS
     Indication: Product used for unknown indication
     Route: 065
  190. CEFUROXIME SODIUM [Concomitant]
     Active Substance: CEFUROXIME SODIUM
     Indication: Product used for unknown indication
     Route: 065
  191. FLUOXETINE HYDROCHLORIDE [Concomitant]
     Active Substance: FLUOXETINE HYDROCHLORIDE
     Indication: Product used for unknown indication
     Route: 065
  192. FROVATRIPTAN SUCCINATE [Concomitant]
     Active Substance: FROVATRIPTAN SUCCINATE
     Indication: Product used for unknown indication
     Route: 065
  193. OSELTAMIVIR PHOSPHATE [Concomitant]
     Active Substance: OSELTAMIVIR PHOSPHATE
     Indication: Product used for unknown indication
     Route: 065
  194. ACETAMINOPHEN\TRAMADOL HYDROCHLORIDE [Suspect]
     Active Substance: ACETAMINOPHEN\TRAMADOL HYDROCHLORIDE
     Route: 065
  195. CIPROFLOXACIN LACTATE [Suspect]
     Active Substance: CIPROFLOXACIN LACTATE
     Indication: Migraine
     Route: 065
  196. CIPROFLOXACIN LACTATE [Suspect]
     Active Substance: CIPROFLOXACIN LACTATE
     Dosage: 1 DOSAGE FORM, 1 EVERY 1 DAY
     Route: 065
  197. CIPROFLOXACIN LACTATE [Suspect]
     Active Substance: CIPROFLOXACIN LACTATE
     Route: 065
  198. ESOMEPRAZOLE MAGNESIUM [Suspect]
     Active Substance: ESOMEPRAZOLE MAGNESIUM
     Indication: Product used for unknown indication
     Route: 065
  199. BOTULINUM TOXIN TYPE A [Suspect]
     Active Substance: BOTULINUM TOXIN TYPE A
     Indication: Product used for unknown indication
     Route: 065
  200. BOTULINUM TOXIN TYPE A [Suspect]
     Active Substance: BOTULINUM TOXIN TYPE A
     Route: 065
  201. BOTULINUM TOXIN TYPE A [Suspect]
     Active Substance: BOTULINUM TOXIN TYPE A
     Route: 065
  202. BOTULINUM TOXIN TYPE A [Suspect]
     Active Substance: BOTULINUM TOXIN TYPE A
     Route: 065
  203. BOTULINUM TOXIN TYPE A [Suspect]
     Active Substance: BOTULINUM TOXIN TYPE A
     Route: 065
  204. BOTULINUM TOXIN TYPE A [Suspect]
     Active Substance: BOTULINUM TOXIN TYPE A
     Indication: Product used for unknown indication
     Route: 065
  205. CLARITHROMYCIN [Suspect]
     Active Substance: CLARITHROMYCIN
     Indication: Product used for unknown indication
     Route: 065
  206. FLUTICASONE PROPIONATE [Concomitant]
     Active Substance: FLUTICASONE PROPIONATE
     Indication: Product used for unknown indication
     Route: 065
  207. MOMETASONE FUROATE [Suspect]
     Active Substance: MOMETASONE FUROATE
     Indication: Product used for unknown indication
     Route: 065
  208. MOMETASONE FUROATE [Suspect]
     Active Substance: MOMETASONE FUROATE
     Route: 065
  209. INDOMETHACIN [Suspect]
     Active Substance: INDOMETHACIN
     Indication: Migraine
     Route: 065
  210. INDOMETHACIN [Suspect]
     Active Substance: INDOMETHACIN
     Route: 054
  211. INDOMETHACIN [Suspect]
     Active Substance: INDOMETHACIN
     Route: 054
  212. INDOMETHACIN [Suspect]
     Active Substance: INDOMETHACIN
     Route: 054
  213. INDOMETHACIN [Suspect]
     Active Substance: INDOMETHACIN
     Route: 054
  214. INDOMETHACIN [Suspect]
     Active Substance: INDOMETHACIN
     Route: 054
  215. INDOMETHACIN [Suspect]
     Active Substance: INDOMETHACIN
     Route: 054
  216. INDOMETHACIN [Suspect]
     Active Substance: INDOMETHACIN
     Route: 054
  217. INDOMETHACIN [Suspect]
     Active Substance: INDOMETHACIN
     Route: 054
  218. INDOMETHACIN [Suspect]
     Active Substance: INDOMETHACIN
     Route: 054
  219. INDOMETHACIN [Suspect]
     Active Substance: INDOMETHACIN
     Route: 054
  220. INDOMETHACIN [Suspect]
     Active Substance: INDOMETHACIN
     Route: 054
  221. INDOMETHACIN [Suspect]
     Active Substance: INDOMETHACIN
     Route: 054
  222. INDOMETHACIN [Suspect]
     Active Substance: INDOMETHACIN
     Route: 054
  223. INDOMETHACIN [Suspect]
     Active Substance: INDOMETHACIN
     Route: 054
  224. INDOMETHACIN [Suspect]
     Active Substance: INDOMETHACIN
     Route: 054
  225. INDOMETHACIN [Suspect]
     Active Substance: INDOMETHACIN
     Route: 054
  226. INDOMETHACIN [Suspect]
     Active Substance: INDOMETHACIN
     Route: 054
  227. INDOMETHACIN [Suspect]
     Active Substance: INDOMETHACIN
     Route: 054
  228. INDOMETHACIN [Suspect]
     Active Substance: INDOMETHACIN
     Route: 054
  229. INDOMETHACIN [Suspect]
     Active Substance: INDOMETHACIN
     Route: 054
  230. INDOMETHACIN [Suspect]
     Active Substance: INDOMETHACIN
     Route: 054
  231. INDOMETHACIN [Suspect]
     Active Substance: INDOMETHACIN
     Route: 054
  232. INDOMETHACIN [Suspect]
     Active Substance: INDOMETHACIN
     Route: 054
  233. INDOMETHACIN [Suspect]
     Active Substance: INDOMETHACIN
     Route: 054
  234. INDOMETHACIN [Suspect]
     Active Substance: INDOMETHACIN
     Route: 054

REACTIONS (9)
  - Angioedema [Unknown]
  - Drug ineffective for unapproved indication [Unknown]
  - Drug intolerance [Unknown]
  - Dysphonia [Unknown]
  - Headache [Unknown]
  - Hypersensitivity [Unknown]
  - Off label use [Unknown]
  - Swelling face [Unknown]
  - Swollen tongue [Unknown]
